FAERS Safety Report 8312110-7 (Version None)
Quarter: 2012Q2

REPORT INFORMATION
  Report Type: 
  Country: None (occurrence: None)
  Receive Date: 20120425
  Receipt Date: 20110808
  Transmission Date: 20120825
  Serious: Yes (Other)
  Sender: FDA-Public Use
  Company Number: US-TEVA-US017381

PATIENT
  Sex: Male
  Weight: 58 kg

DRUGS (9)
  1. SEROQUEL [Concomitant]
     Dosage: 50 MILLIGRAM;
     Route: 065
  2. LEXAPRO [Concomitant]
     Route: 065
  3. REQUIP [Concomitant]
     Dosage: 6 MILLIGRAM;
     Route: 065
  4. PROTONIX [Concomitant]
     Route: 065
  5. PROVIGIL [Suspect]
     Indication: SOMNOLENCE
     Dosage: 400 MILLIGRAM;
     Route: 048
     Dates: start: 20060418
  6. VITAMIN TAB [Concomitant]
     Indication: MEDICAL DIET
     Route: 065
  7. SYNTHROID [Concomitant]
     Route: 065
  8. CARBIDOPA + LEVODOPA [Concomitant]
     Indication: PARKINSON'S DISEASE
     Dosage: 25/100MG TABLETS
     Route: 065
  9. ASPIRIN [Concomitant]
     Route: 065

REACTIONS (2)
  - PARANOIA [None]
  - HALLUCINATION, VISUAL [None]
